FAERS Safety Report 7307591-1 (Version None)
Quarter: 2011Q1

REPORT INFORMATION
  Report Type: 
  Country: None (occurrence: None)
  Receive Date: 20110211
  Receipt Date: 20110201
  Transmission Date: 20110831
  Serious: Yes (Other)
  Sender: FDA-Public Use
  Company Number: 816597

PATIENT
  Age: 34 Year
  Sex: Male
  Weight: 92.73 kg

DRUGS (1)
  1. OXALIPLATIN [Suspect]
     Indication: PRODUCT USED FOR UNKNOWN INDICATION
     Dosage: 177 MG, 125 ML/HR, PORT, OTHER
     Route: 050
     Dates: start: 20110201, end: 20110201

REACTIONS (2)
  - NASAL CONGESTION [None]
  - PRURITUS GENERALISED [None]
